FAERS Safety Report 20045388 (Version 2)
Quarter: 2021Q4

REPORT INFORMATION
  Report Type: Spontaneous
  Country: CN (occurrence: CN)
  Receive Date: 20211108
  Receipt Date: 20211121
  Transmission Date: 20220303
  Serious: Yes (Hospitalization, Other)
  Sender: FDA-Public Use
  Company Number: CN-009507513-2111CHN001510

PATIENT
  Age: 64 Year
  Sex: Male
  Weight: 45 kg

DRUGS (8)
  1. KEYTRUDA [Suspect]
     Active Substance: PEMBROLIZUMAB
     Indication: Lung neoplasm malignant
     Dosage: 100 MG, ONCE
     Route: 041
     Dates: start: 20211006, end: 20211006
  2. CARBOPLATIN [Suspect]
     Active Substance: CARBOPLATIN
     Indication: Lung neoplasm malignant
     Dosage: 500 MG, ONCE
     Route: 041
     Dates: start: 20211006, end: 20211006
  3. PACLITAXEL [Suspect]
     Active Substance: PACLITAXEL
     Indication: Lung neoplasm malignant
     Dosage: 180 MILLIGRAM, EVERY 7 DAYS (QW)
     Route: 041
     Dates: start: 20211006, end: 20211013
  4. SODIUM CHLORIDE [Concomitant]
     Active Substance: SODIUM CHLORIDE
     Indication: Medication dilution
     Dosage: 100 ML, ONCE (ALSO REPORTED AS QD)
     Route: 041
     Dates: start: 20211006, end: 20211013
  5. SODIUM CHLORIDE [Concomitant]
     Active Substance: SODIUM CHLORIDE
     Indication: Infection
     Dosage: 100 MILLILITER, ONCE
     Route: 041
     Dates: start: 20211006
  6. SODIUM CHLORIDE [Concomitant]
     Active Substance: SODIUM CHLORIDE
     Dosage: 100 MILLILITER, BID
     Route: 041
     Dates: start: 20211006, end: 20211027
  7. DEXTROSE [Concomitant]
     Active Substance: DEXTROSE
     Indication: Medication dilution
     Dosage: 500 ML, ONCE
     Route: 041
     Dates: start: 20211006, end: 20211006
  8. CEFOPERAZONE SODIUM\SULBACTAM SODIUM [Concomitant]
     Active Substance: CEFOPERAZONE SODIUM\SULBACTAM SODIUM
     Indication: Infection
     Dosage: 3 GRAM, BID
     Route: 041
     Dates: start: 20211006, end: 20211027

REACTIONS (5)
  - Immune-mediated lung disease [Recovering/Resolving]
  - Interstitial lung disease [Recovering/Resolving]
  - Subclavian vein thrombosis [Unknown]
  - Axillary vein thrombosis [Unknown]
  - Underdose [Unknown]

NARRATIVE: CASE EVENT DATE: 20211001
